FAERS Safety Report 4334850-7 (Version None)
Quarter: 2004Q2

REPORT INFORMATION
  Report Type: 
  Country: None (occurrence: None)
  Receive Date: 20040405
  Receipt Date: 20040326
  Transmission Date: 20050107
  Serious: Yes (Other)
  Sender: FDA-Public Use
  Company Number: 200410334BVD

PATIENT

DRUGS (2)
  1. AVELOX [Suspect]
     Dosage: INTRAVENOUS
     Route: 042
  2. AVELOX [Suspect]
     Dosage: ORAL
     Route: 048

REACTIONS (1)
  - DIARRHOEA HAEMORRHAGIC [None]
